FAERS Safety Report 7423524-1 (Version None)
Quarter: 2011Q2

REPORT INFORMATION
  Report Type: 
  Country: None (occurrence: None)
  Receive Date: 20110419
  Receipt Date: 20110413
  Transmission Date: 20111010
  Serious: Yes (Death)
  Sender: FDA-Public Use
  Company Number: PHHY2011US31520

PATIENT
  Sex: Female

DRUGS (15)
  1. NITROSTAT [Concomitant]
  2. MORPHINE [Concomitant]
  3. PROMETHAZINE [Concomitant]
  4. TUSSIN [Concomitant]
  5. WARFARIN [Concomitant]
  6. SANDOSTATIN LAR [Suspect]
     Dosage: 30 MG, QMO
  7. LOMOTIL [Concomitant]
  8. ATACAND [Concomitant]
  9. REGLAN [Concomitant]
  10. FUROSEMIDE [Concomitant]
  11. CITRUCEL [Concomitant]
  12. MICARDIS [Concomitant]
  13. OXYBUTYNIN [Concomitant]
  14. OMEPRAZOLE [Concomitant]
  15. SCOPOLAMINE [Concomitant]

REACTIONS (1)
  - DEATH [None]
